FAERS Safety Report 8383208-2 (Version None)
Quarter: 2012Q2

REPORT INFORMATION
  Report Type: 
  Country: None (occurrence: None)
  Receive Date: 20120524
  Receipt Date: 20120509
  Transmission Date: 20120825
  Serious: Yes (Other)
  Sender: FDA-Public Use
  Company Number: US-JNJFOC-20120307283

PATIENT
  Age: 26 Year
  Sex: Female
  Weight: 143.34 kg

DRUGS (13)
  1. ACULAR [Concomitant]
     Route: 047
  2. CLARITIN [Concomitant]
     Indication: PREMEDICATION
     Route: 065
  3. PRED FORTE [Concomitant]
     Route: 047
  4. REMICADE [Suspect]
     Route: 042
  5. PREDNISONE [Concomitant]
     Indication: PREMEDICATION
     Route: 065
  6. TYLENOL [Concomitant]
     Indication: PREMEDICATION
     Route: 048
     Dates: start: 20120509
  7. REMICADE [Suspect]
     Indication: SARCOIDOSIS
     Dosage: 4TH INFUSION
     Route: 042
  8. ISONIAZID [Concomitant]
     Route: 048
  9. REMICADE [Suspect]
     Route: 042
     Dates: start: 20120425, end: 20120509
  10. REMICADE [Suspect]
     Indication: CROHN'S DISEASE
     Dosage: 4TH INFUSION
     Route: 042
  11. REMICADE [Suspect]
     Route: 042
     Dates: start: 20120425, end: 20120509
  12. RIFAPENTINE [Concomitant]
     Route: 065
  13. REMICADE [Suspect]
     Route: 042

REACTIONS (8)
  - INFUSION RELATED REACTION [None]
  - HYPOTENSION [None]
  - ERYTHEMA [None]
  - CHEST PAIN [None]
  - BACK PAIN [None]
  - FEELING OF BODY TEMPERATURE CHANGE [None]
  - DYSPNOEA [None]
  - TREMOR [None]
